FAERS Safety Report 10788552 (Version 2)
Quarter: 2016Q1

REPORT INFORMATION
  Report Type: Report from Study
  Country: IT (occurrence: IT)
  Receive Date: 20150212
  Receipt Date: 20160226
  Transmission Date: 20160525
  Serious: Yes (Hospitalization)
  Sender: FDA-Public Use
  Company Number: IT-ROCHE-1064184

PATIENT
  Age: 61 Year
  Sex: Male

DRUGS (18)
  1. PREDNISONE. [Suspect]
     Active Substance: PREDNISONE
     Indication: DIFFUSE LARGE B-CELL LYMPHOMA
     Dosage: MOST RECENT DOSE PRIOR TO SAE 21/APR/2012. LAST DOSE TAKEN 100MG?MOST RECENT DOSE PRIOR TO SAE 07/JU
     Route: 048
     Dates: start: 20120327
  2. PARACETAMOL [Concomitant]
     Active Substance: ACETAMINOPHEN
     Indication: ABDOMINAL PAIN
     Route: 065
     Dates: start: 20120326
  3. PARACETAMOL [Concomitant]
     Active Substance: ACETAMINOPHEN
     Indication: PREMEDICATION
     Route: 065
     Dates: start: 20120327, end: 20120904
  4. OBINUTUZUMAB [Suspect]
     Active Substance: OBINUTUZUMAB
     Indication: DIFFUSE LARGE B-CELL LYMPHOMA
     Dosage: MOST RECENT DOSE OF GA101 PRIOR TO AE ONSET: 03/JUL/2012 AND 17/APR/2012?LAST DOSE TAKEN 250ML AT CO
     Route: 042
     Dates: start: 20120327
  5. CODEINA [Concomitant]
     Indication: ABDOMINAL PAIN
     Route: 065
     Dates: start: 20120326
  6. LAMIVUDINA [Concomitant]
     Active Substance: LAMIVUDINE
     Indication: PROPHYLAXIS
     Route: 065
     Dates: start: 20120327
  7. LATTULOSIO [Concomitant]
     Indication: CONSTIPATION
     Route: 065
     Dates: start: 20120331
  8. ZOFRAN [Concomitant]
     Active Substance: ONDANSETRON HYDROCHLORIDE
     Indication: PREMEDICATION
     Route: 065
     Dates: start: 20120327, end: 20120724
  9. LOPERAMIDE [Concomitant]
     Active Substance: LOPERAMIDE
     Indication: DIARRHOEA
     Route: 065
     Dates: start: 20120426, end: 20120430
  10. DOXORUBICIN [Suspect]
     Active Substance: DOXORUBICIN
     Indication: DIFFUSE LARGE B-CELL LYMPHOMA
     Dosage: MOST RECENT DOSE PRIOR TO SAE 17/APR/2012. LAST DOSE TAKEN 83MG.?MOST RECENT DOSE PRIOR TO SAE 03/JU
     Route: 042
     Dates: start: 20120327
  11. MEGACE [Concomitant]
     Active Substance: MEGESTROL ACETATE
     Indication: WEIGHT DECREASED
     Route: 065
     Dates: start: 20120708, end: 20120814
  12. CYCLOPHOSPHAMIDE. [Suspect]
     Active Substance: CYCLOPHOSPHAMIDE
     Indication: DIFFUSE LARGE B-CELL LYMPHOMA
     Dosage: MOST RECENT DOSE PRIOR TO SAE 17/APR/2012. LAST DOSE TAKEN 1245MG.?MOST RECENT DOSE PRIOR TO SAE 03/
     Route: 042
     Dates: start: 20120327
  13. METOCLOPRAMIDE. [Concomitant]
     Active Substance: METOCLOPRAMIDE
     Indication: NAUSEA
     Route: 065
     Dates: start: 20120331
  14. METOCLOPRAMIDE. [Concomitant]
     Active Substance: METOCLOPRAMIDE
     Indication: VOMITING
  15. VINCRISTINE [Suspect]
     Active Substance: VINCRISTINE
     Indication: DIFFUSE LARGE B-CELL LYMPHOMA
     Dosage: MOST RECENT DOSE PRIOR TO SAE 17/APR/2012. LAST DOSE TAKEN 2MG?MOST RECENT DOSE PRIOR TO SAE 03/JUL/
     Route: 042
     Dates: start: 20120327
  16. CHLORPHENAMINE [Concomitant]
     Active Substance: CHLORPHENIRAMINE MALEATE
     Indication: PREMEDICATION
     Route: 065
     Dates: start: 20120327, end: 20120904
  17. CODEINA [Concomitant]
     Indication: CONSTIPATION
     Route: 065
     Dates: start: 20120331
  18. ALLOPURINOL. [Concomitant]
     Active Substance: ALLOPURINOL
     Indication: PREMEDICATION
     Route: 065
     Dates: start: 20120327, end: 20120904

REACTIONS (1)
  - Febrile neutropenia [Recovered/Resolved]

NARRATIVE: CASE EVENT DATE: 20120426
